FAERS Safety Report 7494198-9 (Version None)
Quarter: 2011Q2

REPORT INFORMATION
  Report Type: 
  Country: None (occurrence: None)
  Receive Date: 20110520
  Receipt Date: 20110509
  Transmission Date: 20111010
  Serious: Yes (Hospitalization)
  Sender: FDA-Public Use
  Company Number: BR-PFIZER INC-2011096655

PATIENT
  Age: 50 Year
  Sex: Female
  Weight: 65.7 kg

DRUGS (11)
  1. TACROLIMUS [Concomitant]
     Indication: RENAL TRANSPLANT
     Dosage: 6 MG, 2X/DAY
     Route: 048
     Dates: start: 20110413
  2. MYCOPHENOLATE MOFETIL [Concomitant]
     Indication: RENAL TRANSPLANT
     Dosage: 720 MG, 2X/DAY
     Route: 048
     Dates: start: 20090412
  3. SIROLIMUS [Suspect]
     Indication: PROPHYLAXIS AGAINST TRANSPLANT REJECTION
     Dosage: 2 MG, DAILY
     Route: 048
     Dates: start: 20090714, end: 20110410
  4. OMEPRAZOLE [Concomitant]
     Indication: PROPHYLAXIS AGAINST GASTROINTESTINAL ULCER
     Dosage: 20 MG, 2X/DAY
     Route: 048
     Dates: start: 20090430
  5. RANITIDINE [Concomitant]
     Indication: PROPHYLAXIS AGAINST GASTROINTESTINAL ULCER
     Dosage: 150 MG, 2X/DAY
     Route: 048
     Dates: start: 20110428
  6. PROPRANOLOL [Concomitant]
     Indication: HYPERTENSION
     Dosage: 40 MG, 3X/DAY
     Route: 048
     Dates: start: 20090412
  7. AMLODIPINE [Concomitant]
     Indication: HYPERTENSION
     Dosage: 5 MG, 2X/DAY
     Route: 048
     Dates: start: 20110425
  8. PREDNISONE [Concomitant]
     Indication: RENAL TRANSPLANT
     Dosage: 5 MG, ONCE A DAY
     Route: 048
     Dates: start: 20090412
  9. ATORVASTATIN [Concomitant]
     Indication: CARDIOVASCULAR DISORDER
     Dosage: 40 MG, 1X/DAY
     Route: 048
     Dates: start: 20110429
  10. LIQUAEMIN INJ [Concomitant]
     Indication: THROMBOSIS PROPHYLAXIS
     Dosage: 5000 IU, 2X/DAY
     Route: 058
     Dates: start: 20110430
  11. ACETYLSALICYLIC ACID [Concomitant]
     Indication: THROMBOSIS PROPHYLAXIS
     Dosage: 100 MG, ONCE A DAY
     Route: 048
     Dates: start: 20090414

REACTIONS (3)
  - SKIN INFECTION [None]
  - SKIN NECROSIS [None]
  - PSEUDOMONAS INFECTION [None]
